FAERS Safety Report 9164691 (Version 2)
Quarter: 2013Q1

REPORT INFORMATION
  Report Type: Spontaneous
  Country: GB (occurrence: None)
  Receive Date: 20130226
  Receipt Date: 20130311
  Transmission Date: 20140127
  Serious: Yes (Hospitalization, Other)
  Sender: FDA-Public Use
  Company Number: KAD201302-000241

PATIENT
  Age: 48 Year
  Sex: Male

DRUGS (3)
  1. RIBAVIRIN [Suspect]
     Indication: HEPATITIS C
     Route: 048
     Dates: start: 20120601
  2. INCIVO [Suspect]
     Indication: HEPATITIS C
     Route: 048
     Dates: start: 20120601, end: 20121107
  3. INTERFERON ALFA-2B (INTERFERON ALFA-2B) [Suspect]
     Indication: HEPATITIS C
     Route: 058
     Dates: start: 20120601

REACTIONS (11)
  - Anaemia [None]
  - Asthenia [None]
  - Confusional state [None]
  - Eating disorder [None]
  - Fatigue [None]
  - Feeling abnormal [None]
  - Full blood count decreased [None]
  - Haemoglobin decreased [None]
  - Infection [None]
  - Platelet count decreased [None]
  - Pruritus [None]
